FAERS Safety Report 22625243 (Version 1)
Quarter: 2023Q2

REPORT INFORMATION
  Report Type: Spontaneous
  Country: US (occurrence: None)
  Receive Date: 20230620
  Receipt Date: 20230620
  Transmission Date: 20230722
  Serious: Yes (Life-Threatening, Hospitalization)
  Sender: FDA-Public Use
  Company Number: None

PATIENT
  Age: 73 Year
  Sex: Male
  Weight: 85.05 kg

DRUGS (3)
  1. ABIRATERONE ACETATE [Suspect]
     Active Substance: ABIRATERONE ACETATE
     Indication: Prostate cancer
     Dosage: FREQUENCY : DAILY;?
     Route: 048
  2. PREDNISONE [Suspect]
     Active Substance: PREDNISONE
     Dates: start: 20230525, end: 20230530
  3. DOCETAXEL [Concomitant]
     Active Substance: DOCETAXEL
     Dates: start: 20230503, end: 20230524

REACTIONS (9)
  - Faeces soft [None]
  - Abnormal faeces [None]
  - Middle insomnia [None]
  - Chest discomfort [None]
  - Palpitations [None]
  - Asthenia [None]
  - Supraventricular tachycardia [None]
  - Hypotension [None]
  - Blood pressure decreased [None]

NARRATIVE: CASE EVENT DATE: 20230606
